FAERS Safety Report 7497804-8 (Version None)
Quarter: 2011Q2

REPORT INFORMATION
  Report Type: 
  Country: None (occurrence: None)
  Receive Date: 20110524
  Receipt Date: 20081121
  Transmission Date: 20111010
  Serious: Yes (Death, Disabling)
  Sender: FDA-Public Use
  Company Number: US-BAYER-200835011NA

PATIENT
  Age: 77 Year
  Sex: Male
  Weight: 97.052 kg

DRUGS (19)
  1. MAGNEVIST [Suspect]
     Indication: NUCLEAR MAGNETIC RESONANCE IMAGING
  2. ZOCOR [Concomitant]
  3. OPTIMARK [Suspect]
     Indication: NUCLEAR MAGNETIC RESONANCE IMAGING
  4. VANCOMYCIN [Concomitant]
  5. NEPHROCAPS [Concomitant]
  6. LOTENSIN [Concomitant]
  7. ASPIRIN [Concomitant]
  8. AUGMENTIN '125' [Concomitant]
  9. PROTONIX [Concomitant]
  10. TOPROL-XL [Concomitant]
  11. PROCRIT [Concomitant]
  12. FUROSEMIDE [Concomitant]
  13. COUMADIN [Concomitant]
  14. GADOLINIUM IN UNSPECIFIED DRUG [Suspect]
     Indication: NUCLEAR MAGNETIC RESONANCE IMAGING
     Dosage: UNK
     Dates: start: 20060512, end: 20060512
  15. SODIUM BICARBONATE [Concomitant]
  16. OMNISCAN [Suspect]
     Indication: NUCLEAR MAGNETIC RESONANCE IMAGING
  17. GADOLINIUM IN UNSPECIFIED DRUG [Suspect]
     Indication: ANGIOGRAM
     Dosage: UNK
     Dates: start: 20060515, end: 20060515
  18. ARANESP [Concomitant]
  19. PLAVIX [Concomitant]

REACTIONS (13)
  - INJURY [None]
  - SCAR [None]
  - GENERAL PHYSICAL HEALTH DETERIORATION [None]
  - QUALITY OF LIFE DECREASED [None]
  - SKIN INDURATION [None]
  - FIBROSIS [None]
  - ANXIETY [None]
  - EMOTIONAL DISTRESS [None]
  - ARTHRALGIA [None]
  - NEPHROGENIC SYSTEMIC FIBROSIS [None]
  - PAIN [None]
  - SKIN FIBROSIS [None]
  - EXTREMITY CONTRACTURE [None]
